FAERS Safety Report 19212830 (Version 1)
Quarter: 2021Q2

REPORT INFORMATION
  Report Type: Spontaneous
  Country: US (occurrence: US)
  Receive Date: 20210504
  Receipt Date: 20210504
  Transmission Date: 20210717
  Serious: No
  Sender: FDA-Public Use
  Company Number: US-BAYER-2021-135210

PATIENT
  Age: 50 Year
  Sex: Female

DRUGS (1)
  1. CLIMARA PRO [Suspect]
     Active Substance: ESTRADIOL\LEVONORGESTREL
     Indication: HORMONE THERAPY
     Dosage: UNK
     Route: 062
     Dates: start: 20210318

REACTIONS (5)
  - Product adhesion issue [Not Recovered/Not Resolved]
  - Patient dissatisfaction with device [None]
  - Wrong technique in product usage process [Not Recovered/Not Resolved]
  - Product prescribing issue [None]
  - Product availability issue [None]

NARRATIVE: CASE EVENT DATE: 202103
